FAERS Safety Report 7119074-2 (Version None)
Quarter: 2010Q4

REPORT INFORMATION
  Report Type: 
  Country: None (occurrence: None)
  Receive Date: 20101123
  Receipt Date: 20101117
  Transmission Date: 20110411
  Serious: Yes (Congenital Anomaly)
  Sender: FDA-Public Use
  Company Number: B0679856A

PATIENT

DRUGS (4)
  1. ABACAVIR [Suspect]
     Indication: DRUG EXPOSURE DURING PREGNANCY
     Dosage: 600MG PER DAY
     Dates: start: 20050809
  2. KALETRA [Suspect]
     Indication: DRUG EXPOSURE DURING PREGNANCY
     Dosage: 2TAB TWICE PER DAY
     Dates: start: 20050809
  3. TENOFOVIR DISOPROXIL FUMARATE [Suspect]
     Indication: DRUG EXPOSURE DURING PREGNANCY
  4. TRUVADA [Suspect]
     Indication: ANTIVIRAL TREATMENT
     Dosage: 300MG PER DAY

REACTIONS (3)
  - DRUG EXPOSURE DURING PREGNANCY [None]
  - MATERNAL DRUGS AFFECTING FOETUS [None]
  - PERSISTENT LEFT SUPERIOR VENA CAVA [None]
